FAERS Safety Report 19690279 (Version 1)
Quarter: 2021Q3

REPORT INFORMATION
  Report Type: Report from Study
  Country: CO (occurrence: CO)
  Receive Date: 20210812
  Receipt Date: 20210812
  Transmission Date: 20211014
  Serious: Yes (Other)
  Sender: FDA-Public Use
  Company Number: CO-JNJFOC-20200620546

PATIENT
  Age: 28 Year
  Sex: Male
  Weight: 61 kg

DRUGS (1)
  1. SIMPONI [Suspect]
     Active Substance: GOLIMUMAB
     Indication: ANKYLOSING SPONDYLITIS
     Route: 058
     Dates: start: 20200330

REACTIONS (5)
  - Systemic lupus erythematosus [Recovering/Resolving]
  - Wound infection [Recovered/Resolved]
  - Drug ineffective [Unknown]
  - Neck pain [Recovered/Resolved]
  - Ear infection [Recovered/Resolved]

NARRATIVE: CASE EVENT DATE: 202005
